FAERS Safety Report 16298565 (Version 1)
Quarter: 2019Q2

REPORT INFORMATION
  Report Type: Report from Study
  Country: US (occurrence: US)
  Receive Date: 20190510
  Receipt Date: 20190510
  Transmission Date: 20190711
  Serious: Yes (Hospitalization)
  Sender: FDA-Public Use
  Company Number: US-BAYER-2019-090089

PATIENT
  Sex: Female

DRUGS (2)
  1. NAPROXEN. [Suspect]
     Active Substance: NAPROXEN
     Indication: PAIN
     Dosage: AS INSTRUCTED
  2. APAP;HYDROCODONE [Suspect]
     Active Substance: ACETAMINOPHEN\HYDROCODONE
     Indication: PAIN
     Dosage: AS INSTRUCTED

REACTIONS (5)
  - Colitis ischaemic [None]
  - Shock haemorrhagic [None]
  - Ischaemic hepatitis [None]
  - Duodenal ulcer haemorrhage [None]
  - Small intestinal haemorrhage [None]
